FAERS Safety Report 20028510 (Version 4)
Quarter: 2024Q4

REPORT INFORMATION
  Report Type: Spontaneous
  Country: US (occurrence: US)
  Receive Date: 20211103
  Receipt Date: 20241110
  Transmission Date: 20250115
  Serious: Yes (Other)
  Sender: SANOFI AVENTIS
  Company Number: US-SA-SAC20211101000440

PATIENT
  Sex: Female
  Weight: 126 kg

DRUGS (9)
  1. DUPIXENT [Suspect]
     Active Substance: DUPILUMAB
     Indication: Dermatitis atopic
     Dosage: 300 MG, QOW
     Route: 058
     Dates: start: 201908
  2. LEVOCABASTINE HYDROCHLORIDE [Concomitant]
     Active Substance: LEVOCABASTINE HYDROCHLORIDE
  3. VITAMIN D3 [Concomitant]
     Active Substance: CHOLECALCIFEROL
  4. VITAMINS NOS [Concomitant]
     Active Substance: VITAMINS
  5. MONTELUKAST SODIUM [Concomitant]
     Active Substance: MONTELUKAST SODIUM
  6. AZATHIOPRINE [Concomitant]
     Active Substance: AZATHIOPRINE
  7. FLUTICASONE [Concomitant]
     Active Substance: FLUTICASONE
  8. MINOXIDIL [Concomitant]
     Active Substance: MINOXIDIL
  9. VITAMINS [Concomitant]
     Active Substance: VITAMINS

REACTIONS (7)
  - Congenital eye disorder [Unknown]
  - Condition aggravated [Unknown]
  - Bronchitis [Unknown]
  - Illness [Unknown]
  - COVID-19 [Unknown]
  - Visual impairment [Unknown]
  - Eye inflammation [Not Recovered/Not Resolved]

NARRATIVE: CASE EVENT DATE: 20240101
